FAERS Safety Report 11394619 (Version 2)
Quarter: 2015Q3

REPORT INFORMATION
  Report Type: Report from Study
  Country: CA (occurrence: CA)
  Receive Date: 20150819
  Receipt Date: 20150821
  Transmission Date: 20151125
  Serious: Yes (Hospitalization)
  Sender: FDA-Public Use
  Company Number: CA-ABBVIE-15K-028-1444935-00

PATIENT
  Sex: Female

DRUGS (1)
  1. HUMIRA [Suspect]
     Active Substance: ADALIMUMAB
     Indication: CROHN^S DISEASE
     Route: 058
     Dates: start: 20110412

REACTIONS (4)
  - Swelling face [Recovered/Resolved]
  - Adverse drug reaction [Recovered/Resolved]
  - Gastric disorder [Recovered/Resolved]
  - Immune system disorder [Unknown]
